FAERS Safety Report 14082227 (Version 2)
Quarter: 2017Q4

REPORT INFORMATION
  Report Type: Spontaneous
  Country: CN (occurrence: CN)
  Receive Date: 20171013
  Receipt Date: 20171025
  Transmission Date: 20180321
  Serious: Yes (Other)
  Sender: FDA-Public Use
  Company Number: CN-GLAXOSMITHKLINE-CN2017GSK154208

PATIENT
  Age: 17 Month
  Weight: 12 kg

DRUGS (16)
  1. VENTOLIN HFA [Suspect]
     Active Substance: ALBUTEROL SULFATE
     Indication: ASTHMA
     Dosage: UNK
     Route: 055
  2. VENTOLIN HFA [Suspect]
     Active Substance: ALBUTEROL SULFATE
     Dosage: 2 DF, BID
     Route: 055
     Dates: start: 20171001
  3. SINGULAIR [Concomitant]
     Active Substance: MONTELUKAST SODIUM
     Indication: PRODUCT USED FOR UNKNOWN INDICATION
     Dosage: UNK UNK, TID
     Route: 048
     Dates: start: 20171001
  4. PARACETAMOL PEDIATRIC [Concomitant]
     Indication: PERITONSILLAR ABSCESS
     Dosage: UNK UNK, TID
     Route: 048
     Dates: start: 20171001, end: 20171012
  5. AZITHROMYCIN ANHYDROUS. [Suspect]
     Active Substance: AZITHROMYCIN ANHYDROUS
     Indication: ASTHMA
     Dosage: UNK
  6. PARACETAMOL PEDIATRIC [Concomitant]
     Indication: NASOPHARYNGITIS
  7. HOUTTUYNIA CORDATA [Concomitant]
     Indication: PERITONSILLAR ABSCESS
     Dosage: UNK
     Route: 048
     Dates: start: 20171001, end: 20171012
  8. HOUTTUYNIA CORDATA [Concomitant]
     Indication: NASOPHARYNGITIS
  9. FLIXOTIDE [Suspect]
     Active Substance: FLUTICASONE PROPIONATE
     Dosage: 2 DF, BID
     Route: 055
     Dates: start: 20171001
  10. CEFACLOR. [Concomitant]
     Active Substance: CEFACLOR
     Indication: ASTHMA
     Dosage: UNK UNK, TID
     Route: 048
     Dates: start: 20171001, end: 20171005
  11. PARACETAMOL PEDIATRIC [Concomitant]
     Indication: ADENOIDAL HYPERTROPHY
  12. HOUTTUYNIA CORDATA [Concomitant]
     Indication: ADENOIDAL HYPERTROPHY
  13. IPRATROPIUM BROMIDE. [Concomitant]
     Active Substance: IPRATROPIUM BROMIDE
     Indication: ASTHMA
     Dosage: UNK
     Route: 055
     Dates: start: 20171001
  14. FLIXOTIDE [Suspect]
     Active Substance: FLUTICASONE PROPIONATE
     Indication: ASTHMA
     Dosage: 2 UNK, BID
     Route: 055
  15. PENICILLIN [Suspect]
     Active Substance: PENICILLIN
     Indication: ASTHMA
     Dosage: UNK
  16. SINGULAIR [Concomitant]
     Active Substance: MONTELUKAST SODIUM
     Indication: ASTHMA
     Dosage: UNK
     Route: 048
     Dates: start: 20171001

REACTIONS (15)
  - Product use in unapproved indication [Unknown]
  - Rash [Recovered/Resolved]
  - Nasopharyngitis [Recovered/Resolved]
  - Adenoidal hypertrophy [Recovering/Resolving]
  - Drug ineffective [Unknown]
  - Suffocation feeling [Unknown]
  - Off label use [Unknown]
  - Snoring [Unknown]
  - Dyspnoea [Not Recovered/Not Resolved]
  - Rhinitis [Recovering/Resolving]
  - Sneezing [Not Recovered/Not Resolved]
  - Wheezing [Unknown]
  - Overdose [Unknown]
  - Peritonsillar abscess [Recovering/Resolving]
  - Drug administered to patient of inappropriate age [Unknown]

NARRATIVE: CASE EVENT DATE: 20170904
